FAERS Safety Report 18596024 (Version 1)
Quarter: 2020Q4

REPORT INFORMATION
  Report Type: Spontaneous
  Country: US (occurrence: US)
  Receive Date: 20201209
  Receipt Date: 20201209
  Transmission Date: 20210114
  Serious: No
  Sender: FDA-Public Use
  Company Number: US-GE HEALTHCARE LIFE SCIENCES-2020CSU005043

PATIENT
  Age: 70 Year
  Sex: Female

DRUGS (3)
  1. VISIPAQUE [Suspect]
     Active Substance: IODIXANOL
     Indication: CHEST PAIN
  2. VISIPAQUE [Suspect]
     Active Substance: IODIXANOL
     Indication: CARDIAC STRESS TEST ABNORMAL
     Dosage: 125 ML, SINGLE
     Route: 042
     Dates: start: 20200923, end: 20200923
  3. VISIPAQUE [Suspect]
     Active Substance: IODIXANOL
     Indication: SCAN

REACTIONS (2)
  - Pruritus [Recovering/Resolving]
  - Rash [Recovering/Resolving]

NARRATIVE: CASE EVENT DATE: 20200925
